FAERS Safety Report 12797444 (Version 1)
Quarter: 2016Q3

REPORT INFORMATION
  Report Type: Spontaneous
  Country: MX (occurrence: MX)
  Receive Date: 20160930
  Receipt Date: 20160930
  Transmission Date: 20161109
  Serious: Yes (Other)
  Sender: FDA-Public Use
  Company Number: MX-009507513-1609MEX012052

PATIENT

DRUGS (1)
  1. BRIDION [Suspect]
     Active Substance: SUGAMMADEX
     Dosage: STRENGTH: 100 MG/ML (VIAL 2 ML), UNK

REACTIONS (1)
  - Acute pulmonary oedema [Unknown]
